FAERS Safety Report 25191166 (Version 1)
Quarter: 2025Q2

REPORT INFORMATION
  Report Type: Spontaneous
  Country: IT (occurrence: IT)
  Receive Date: 20250411
  Receipt Date: 20250411
  Transmission Date: 20250717
  Serious: Yes (Other)
  Sender: NOVARTIS
  Company Number: None

PATIENT
  Age: 87 Year
  Sex: Male
  Weight: 75 kg

DRUGS (4)
  1. BEOVU [Suspect]
     Active Substance: BROLUCIZUMAB-DBLL
     Indication: Neovascular age-related macular degeneration
     Route: 031
     Dates: start: 20210906, end: 20210906
  2. BEOVU [Suspect]
     Active Substance: BROLUCIZUMAB-DBLL
     Route: 031
     Dates: start: 20241219, end: 20241219
  3. ASPIRIN LYSINE [Concomitant]
     Active Substance: ASPIRIN LYSINE
     Indication: Thrombosis prophylaxis
     Dosage: 75 MG, Q24H, GRANULES IN SACHET
     Route: 048
  4. VALSARTAN [Concomitant]
     Active Substance: VALSARTAN
     Indication: Hypertension
     Dosage: 80 MG, Q12H
     Route: 048

REACTIONS (2)
  - Subretinal fluid [Not Recovered/Not Resolved]
  - Therapeutic product effect decreased [Not Recovered/Not Resolved]

NARRATIVE: CASE EVENT DATE: 20250110
